FAERS Safety Report 25336827 (Version 1)
Quarter: 2025Q2

REPORT INFORMATION
  Report Type: Spontaneous
  Country: US (occurrence: US)
  Receive Date: 20250520
  Receipt Date: 20250520
  Transmission Date: 20250717
  Serious: No
  Sender: MERCK SHARP & DOHME LLC
  Company Number: US-009507513-2281038

PATIENT
  Sex: Male

DRUGS (5)
  1. VARIVAX [Suspect]
     Active Substance: VARICELLA-ZOSTER VIRUS STRAIN OKA/MERCK LIVE ANTIGEN
     Indication: Prophylaxis
     Route: 058
     Dates: start: 20250417, end: 20250417
  2. MEASLES-MUMPS-RUBELLA VIRUS VACCINE [Concomitant]
     Active Substance: MEASLES-MUMPS-RUBELLA VIRUS VACCINE
     Indication: Prophylaxis
     Route: 058
     Dates: start: 20250417, end: 20250417
  3. Hepatitis A [Concomitant]
     Indication: Prophylaxis
     Route: 030
     Dates: start: 20250417, end: 20250417
  4. STERILE DILUENT (WATER) [Concomitant]
     Active Substance: WATER
     Indication: Prophylaxis
     Dates: start: 20250417, end: 20250417
  5. STERILE DILUENT (WATER) [Suspect]
     Active Substance: WATER
     Indication: Prophylaxis
     Dates: start: 20250417, end: 20250417

REACTIONS (2)
  - Product storage error [Unknown]
  - No adverse event [Unknown]
